FAERS Safety Report 8610739-X (Version None)
Quarter: 2012Q3

REPORT INFORMATION
  Report Type: 
  Country: None (occurrence: None)
  Receive Date: 20120808
  Receipt Date: 20120726
  Transmission Date: 20120928
  Serious: Yes (Hospitalization, Other)
  Sender: FDA-Public Use
  Company Number: NSR_00599_2012

PATIENT
  Age: 50 Year
  Sex: Female

DRUGS (10)
  1. VENLAFAXINE (VENLAFAXINE) [Suspect]
     Indication: MAJOR DEPRESSION
     Dosage: (37.5 MG QD), (), (150 MG QD), (225 MG QD), (150 MG QD), (75 MG QD, DAY 29), (225 MG QD)
  2. VENLAFAXINE (VENLAFAXINE) [Suspect]
     Indication: MAJOR DEPRESSION
     Dosage: (37.5 MG QD), (), (150 MG QD), (225 MG QD), (150 MG QD), (75 MG QD, DAY 29), (225 MG QD)
  3. VENLAFAXINE (VENLAFAXINE) [Suspect]
     Indication: MAJOR DEPRESSION
     Dosage: (37.5 MG QD), (), (150 MG QD), (225 MG QD), (150 MG QD), (75 MG QD, DAY 29), (225 MG QD)
  4. VENLAFAXINE (VENLAFAXINE) [Suspect]
     Indication: MAJOR DEPRESSION
     Dosage: (37.5 MG QD), (), (150 MG QD), (225 MG QD), (150 MG QD), (75 MG QD, DAY 29), (225 MG QD)
  5. LORAZEPAM [Concomitant]
  6. ZOPICLONE [Concomitant]
  7. LEVOTHYROXINE SODIUM [Concomitant]
  8. BISOPROLOL FUMARATE [Concomitant]
  9. LITHIUM CARBONATE [Concomitant]
  10. FLUOXETINE [Suspect]
     Indication: MAJOR DEPRESSION
     Dosage: (60 MG QD)

REACTIONS (5)
  - AGITATION [None]
  - ANXIETY [None]
  - DRUG LEVEL ABOVE THERAPEUTIC [None]
  - CYP2D6 POLYMORPHISM [None]
  - INSOMNIA [None]
